FAERS Safety Report 9510955 (Version 1)
Quarter: 2013Q3

REPORT INFORMATION
  Report Type: Spontaneous
  Country: US (occurrence: US)
  Receive Date: 20130910
  Receipt Date: 20130910
  Transmission Date: 20140515
  Serious: No
  Sender: FDA-Public Use
  Company Number: US-009507513-1309USA002051

PATIENT
  Age: 73 Year
  Sex: Female

DRUGS (2)
  1. ZETIA [Suspect]
     Indication: HYPERLIPIDAEMIA
     Dosage: 10 MG, QD
     Route: 048
  2. WELCHOL [Concomitant]

REACTIONS (2)
  - Blood cholesterol increased [Recovered/Resolved]
  - Back pain [Recovered/Resolved]
